FAERS Safety Report 5739510-3 (Version None)
Quarter: 2008Q2

REPORT INFORMATION
  Report Type: 
  Country: None (occurrence: None)
  Receive Date: 20080513
  Receipt Date: 20080430
  Transmission Date: 20081010
  Serious: Yes (Hospitalization, Other)
  Sender: FDA-Public Use
  Company Number: 2008036284

PATIENT
  Age: 32 Year
  Sex: Female
  Weight: 99 kg

DRUGS (6)
  1. FRAGMIN [Suspect]
     Indication: EMBOLISM VENOUS
     Dosage: 20000 IU (10000 IU, 2 IN 1 D), 22500,  SUBCUTANEOUS
     Route: 058
     Dates: start: 20080419, end: 20080421
  2. FRAGMIN [Suspect]
     Indication: EMBOLISM VENOUS
     Dosage: 20000 IU (10000 IU, 2 IN 1 D), 22500,  SUBCUTANEOUS
     Route: 058
     Dates: start: 20080421
  3. CODEINE PHOSPHATE (CODEINE PHOSPHATE) [Concomitant]
  4. CYCLIZINE (CYCLIZINE) [Concomitant]
  5. TRAMADOL HCL [Concomitant]
  6. ACETAMINOPHEN [Concomitant]

REACTIONS (2)
  - DRUG EXPOSURE DURING PREGNANCY [None]
  - DRUG LEVEL BELOW THERAPEUTIC [None]
